FAERS Safety Report 20447179 (Version 1)
Quarter: 2022Q1

REPORT INFORMATION
  Report Type: Spontaneous
  Country: FR (occurrence: FR)
  Receive Date: 20220209
  Receipt Date: 20220209
  Transmission Date: 20220423
  Serious: Yes (Congenital Anomaly)
  Sender: FDA-Public Use
  Company Number: FR-ABBVIE-22K-056-4268287-00

PATIENT
  Sex: Male
  Weight: 3.3 kg

DRUGS (1)
  1. VALPROATE SODIUM [Suspect]
     Active Substance: VALPROATE SODIUM
     Indication: Maternal exposure timing unspecified
     Route: 064

REACTIONS (6)
  - Congenital tongue anomaly [Not Recovered/Not Resolved]
  - Labial tie [Not Recovered/Not Resolved]
  - Phobia [Not Recovered/Not Resolved]
  - Hypospadias [Not Recovered/Not Resolved]
  - Aphasia [Unknown]
  - Foetal exposure during pregnancy [Unknown]

NARRATIVE: CASE EVENT DATE: 20060614
